FAERS Safety Report 8524875-X (Version None)
Quarter: 2012Q3

REPORT INFORMATION
  Report Type: 
  Country: None (occurrence: None)
  Receive Date: 20120720
  Receipt Date: 20120713
  Transmission Date: 20120928
  Serious: Yes (Hospitalization, Other)
  Sender: FDA-Public Use
  Company Number: US-B.I. PHARMACEUTICALS,INC./RIDGEFIELD-2012-BP-13012PF

PATIENT
  Sex: Female

DRUGS (5)
  1. PROTONIX [Suspect]
  2. CELEXA [Concomitant]
     Indication: DEPRESSION
  3. LYRICA [Suspect]
  4. LYRICA [Suspect]
     Dates: start: 20120712
  5. SPIRIVA [Suspect]

REACTIONS (3)
  - HOSPITALISATION [None]
  - CEREBROVASCULAR ACCIDENT [None]
  - CONFUSIONAL STATE [None]
